FAERS Safety Report 12076237 (Version 2)
Quarter: 2016Q1

REPORT INFORMATION
  Report Type: Spontaneous
  Country: CH (occurrence: CH)
  Receive Date: 20160215
  Receipt Date: 20160217
  Transmission Date: 20160526
  Serious: Yes (Life-Threatening, Hospitalization)
  Sender: FDA-Public Use
  Company Number: CH-ROCHE-1709896

PATIENT
  Age: 49 Year
  Sex: Female
  Weight: 69.1 kg

DRUGS (12)
  1. NOVALGIN (SWITZERLAND) [Suspect]
     Active Substance: DIPYRONE
     Indication: POSTOPERATIVE ANALGESIA
     Route: 048
     Dates: start: 20160125, end: 20160127
  2. LASIX [Suspect]
     Active Substance: FUROSEMIDE
     Indication: FLUID OVERLOAD
     Dosage: FORM STRENGTH: 20 MG/2
     Route: 040
  3. ROCEPHIN [Suspect]
     Active Substance: CEFTRIAXONE SODIUM
     Indication: ANTIBIOTIC PROPHYLAXIS
     Route: 040
     Dates: start: 20160125
  4. DISOPRIVAN [Concomitant]
     Active Substance: PROPOFOL
     Indication: INDUCTION AND MAINTENANCE OF ANAESTHESIA
     Route: 042
     Dates: start: 20160125, end: 20160127
  5. NOVALGIN (SWITZERLAND) [Suspect]
     Active Substance: DIPYRONE
     Indication: POSTOPERATIVE ANALGESIA
     Route: 048
     Dates: start: 20160125, end: 20160127
  6. ULTIVA [Concomitant]
     Active Substance: REMIFENTANIL HYDROCHLORIDE
     Indication: ANAESTHESIA PROCEDURE
     Route: 042
     Dates: start: 20160125, end: 20160127
  7. TORA-DOL [Suspect]
     Active Substance: KETOROLAC TROMETHAMINE
     Indication: POSTOPERATIVE ANALGESIA
     Route: 040
  8. NEXIUM 24HR [Suspect]
     Active Substance: ESOMEPRAZOLE MAGNESIUM
     Indication: PROPHYLAXIS AGAINST GASTROINTESTINAL ULCER
     Dosage: FORM STRENGTH: 40 MUPS-TABLET TEN
     Route: 065
     Dates: start: 20160126
  9. RASILEZ [Suspect]
     Active Substance: ALISKIREN
     Indication: HYPERTENSION
     Route: 048
  10. COAPROVEL [Suspect]
     Active Substance: HYDROCHLOROTHIAZIDE\IRBESARTAN
     Indication: HYPERTENSION
     Route: 048
  11. FRAXIPARINE [Suspect]
     Active Substance: NADROPARIN CALCIUM
     Indication: THROMBOSIS PROPHYLAXIS
     Route: 058
     Dates: start: 20160125, end: 20160125
  12. ESMERON [Concomitant]
     Active Substance: ROCURONIUM BROMIDE
     Indication: MUSCLE RELAXANT THERAPY
     Route: 040
     Dates: start: 20160125, end: 20160127

REACTIONS (5)
  - Agranulocytosis [Recovered/Resolved]
  - Acute kidney injury [Recovering/Resolving]
  - Thrombocytopenia [Recovered/Resolved]
  - Post procedural haemorrhage [Recovered/Resolved]
  - Pyrexia [None]

NARRATIVE: CASE EVENT DATE: 20160126
